FAERS Safety Report 9643065 (Version 1)
Quarter: 2013Q4

REPORT INFORMATION
  Report Type: Spontaneous
  Country: US (occurrence: None)
  Receive Date: 20131023
  Receipt Date: 20131023
  Transmission Date: 20140711
  Serious: Yes (Hospitalization)
  Sender: FDA-Public Use
  Company Number: None

PATIENT
  Age: 75 Year
  Sex: Male
  Weight: 66.5 kg

DRUGS (1)
  1. LENALIDOMIDE [Suspect]
     Indication: NON-HODGKIN^S LYMPHOMA
     Dosage: 5MG AT BEDTIME, PO
     Route: 048
     Dates: start: 20121207, end: 20121217

REACTIONS (6)
  - Asthenia [None]
  - Thrombocytopenia [None]
  - Anaemia [None]
  - Dyspnoea [None]
  - Leukocytosis [None]
  - Decreased appetite [None]
